FAERS Safety Report 9846198 (Version 1)
Quarter: 2014Q1

REPORT INFORMATION
  Report Type: Report from Study
  Country: US (occurrence: US)
  Receive Date: 20140127
  Receipt Date: 20140127
  Transmission Date: 20141002
  Serious: Yes (Death, Hospitalization)
  Sender: FDA-Public Use
  Company Number: US-ROCHE-1334686

PATIENT
  Age: 66 Year
  Sex: Female
  Weight: 47.22 kg

DRUGS (29)
  1. AVASTIN [Suspect]
     Indication: LUNG NEOPLASM MALIGNANT
     Dosage: ON 14/MAR/2011, SHE RECEIVED 500 MG OF BEVACIZUMAB. ON 11/MAY/2011, SHE RECEIVED 490 MG OF BEVACIZUM
     Route: 042
  2. AVASTIN [Suspect]
     Indication: ADENOCARCINOMA
     Dosage: ON 28/OCT/2010, 04/APR/2011 AND 25/APR/2011, SHE RECEIVED 735 MG BEVACIZUMAB.  ON 26/JUL/2010, 22/OC
     Route: 042
  3. GRANISETRON [Suspect]
     Indication: PRODUCT USED FOR UNKNOWN INDICATION
     Dosage: STARTED ON 14/MAR/2011
     Route: 065
  4. DICLOFENAC SODIUM [Concomitant]
     Route: 048
     Dates: start: 20101229
  5. SINEMET [Concomitant]
     Dosage: DOSEE: 25-250 MG
     Route: 048
     Dates: start: 20101229
  6. SPIRIVA [Concomitant]
     Route: 048
     Dates: start: 20101229
  7. VERAPAMIL [Concomitant]
     Dosage: USE AS DIRECETED
     Route: 065
     Dates: start: 20111214
  8. VITAMIN C [Concomitant]
     Route: 048
     Dates: start: 20101229
  9. XANAX [Concomitant]
     Dosage: AS NEEDED
     Route: 048
     Dates: start: 20120228
  10. ZEGERID OTC [Concomitant]
     Route: 048
     Dates: start: 20120228
  11. ZOCOR [Concomitant]
     Dosage: AS NEEDED
     Route: 048
     Dates: start: 20101229
  12. DEXAMETHASON [Concomitant]
     Dosage: 1 TABLET DAILY 1 WEEK BEFORE CHEMOTHERAPY AND 1 TABLET DAILY FOR 3 WEEKS AFTER CHEMO
     Route: 048
     Dates: start: 20110314
  13. DEXAMETHASON [Concomitant]
     Dosage: DAY BEFORE CHEMO, CONT. 1 DAY AFTER CHEMO (3 DAYS)
     Route: 048
     Dates: start: 20110314
  14. FERROUS SULFATE [Concomitant]
     Route: 048
     Dates: start: 20120102
  15. FOLIC ACID [Concomitant]
     Dosage: 1 TABLET DAILY 1 WEEK BEFORE CHEMOTHERAPY AND 1 TABLET DAILY FOR 3 WEEKS AFTER CHEMOTHERAPY
     Route: 048
     Dates: start: 20110307
  16. SEREVENT [Concomitant]
     Route: 065
     Dates: start: 20110307
  17. MEGESTROL ACETATE [Concomitant]
     Dosage: 10 ML TWICE DAILY
     Route: 048
     Dates: start: 20120228
  18. ALIMTA [Concomitant]
     Route: 065
  19. ACYCLOVIR [Concomitant]
     Route: 048
  20. ACYCLOVIR [Concomitant]
     Dosage: 5 TIMES DAILY
     Route: 048
  21. FLUCONAZOLE [Concomitant]
     Route: 048
  22. NADOLOL [Concomitant]
     Route: 048
  23. CARBOPLATIN [Concomitant]
     Dosage: AUC 6
     Route: 065
  24. TAXOTERE [Concomitant]
     Route: 065
     Dates: start: 20100726
  25. ALOXI [Concomitant]
     Route: 040
  26. BENADRYL (UNITED STATES) [Concomitant]
     Route: 065
     Dates: start: 20100726
  27. PEPCID [Concomitant]
     Route: 042
  28. FOSAMAX [Concomitant]
  29. NACL .9% [Concomitant]
     Route: 065

REACTIONS (33)
  - Lung cancer metastatic [Fatal]
  - Oesophageal candidiasis [Unknown]
  - Oral candidiasis [Unknown]
  - Fatigue [Unknown]
  - Hypotension [Unknown]
  - Dehydration [Unknown]
  - Somnolence [Unknown]
  - Weight decreased [Unknown]
  - Dyspnoea [Unknown]
  - Mucosal inflammation [Unknown]
  - Osteoporosis [Unknown]
  - Diarrhoea [Unknown]
  - Jaundice [Unknown]
  - Mental status changes [Unknown]
  - Asthenia [Unknown]
  - Decreased appetite [Unknown]
  - Stomatitis [Unknown]
  - Tachycardia [Unknown]
  - Palpitations [Unknown]
  - Dry skin [Unknown]
  - Dizziness [Unknown]
  - Arthritis [Unknown]
  - Restless legs syndrome [Unknown]
  - Rib fracture [Unknown]
  - Osteopenia [Unknown]
  - Underweight [Unknown]
  - Fatigue [Unknown]
  - Thrombocytosis [Unknown]
  - Fatigue [Unknown]
  - Cough [Unknown]
  - Feeling abnormal [Unknown]
  - Breath sounds abnormal [Unknown]
  - Malnutrition [Unknown]
